FAERS Safety Report 7413476-2 (Version None)
Quarter: 2011Q2

REPORT INFORMATION
  Report Type: 
  Country: None (occurrence: None)
  Receive Date: 20110413
  Receipt Date: 20110404
  Transmission Date: 20111010
  Serious: Yes (Disabling, Other)
  Sender: FDA-Public Use
  Company Number: PHHY2011FR13677

PATIENT
  Sex: Female
  Weight: 74 kg

DRUGS (3)
  1. ORAL CONTRACEPTIVE NOS [Concomitant]
  2. TASIGNA [Suspect]
     Indication: DRUG RESISTANCE
     Dosage: 400 MG, BID
     Dates: start: 20070111
  3. TASIGNA [Suspect]
     Dosage: 600 MG, DAILY

REACTIONS (8)
  - HYPERCHOLESTEROLAEMIA [None]
  - FEMORAL ARTERIAL STENOSIS [None]
  - INTERMITTENT CLAUDICATION [None]
  - PAIN IN EXTREMITY [None]
  - COLLATERAL CIRCULATION [None]
  - COELIAC ARTERY STENOSIS [None]
  - FEMORAL ARTERY OCCLUSION [None]
  - RENAL ARTERY STENOSIS [None]
